FAERS Safety Report 4693143-9 (Version None)
Quarter: 2005Q2

REPORT INFORMATION
  Report Type: 
  Country: None (occurrence: None)
  Receive Date: 20050617
  Receipt Date: 20050617
  Transmission Date: 20051028
  Serious: Yes (Death)
  Sender: FDA-Public Use
  Company Number: None

PATIENT
  Sex: Female
  Weight: 83.0083 kg

DRUGS (2)
  1. RU 486 [Suspect]
     Indication: ABORTION
     Dates: start: 20050609, end: 20050610
  2. MISOPROTOL [Suspect]
     Dates: start: 20050610, end: 20050610

REACTIONS (3)
  - ABDOMINAL PAIN [None]
  - ENDOMETRITIS [None]
  - SEPSIS [None]
